FAERS Safety Report 14923462 (Version 1)
Quarter: 2018Q2

REPORT INFORMATION
  Report Type: Report from Study
  Country: US (occurrence: AR)
  Receive Date: 20180522
  Receipt Date: 20180522
  Transmission Date: 20180711
  Serious: Yes (Hospitalization)
  Sender: FDA-Public Use
  Company Number: US-SUNOVION-2018SUN002024

PATIENT

DRUGS (5)
  1. INDACATEROL AND GLYCOPYRROLATE [Suspect]
     Active Substance: GLYCOPYRROLATE\INDACATEROL MALEATE
     Indication: PNEUMONIA
     Dosage: UNK, QD
     Route: 065
     Dates: start: 2017, end: 201802
  2. SINTROM [Suspect]
     Active Substance: ACENOCOUMAROL
     Indication: PRODUCT USED FOR UNKNOWN INDICATION
     Dosage: UNK
     Route: 065
     Dates: start: 2015
  3. PLETAL [Concomitant]
     Active Substance: CILOSTAZOL
     Route: 065
  4. CORBIS [Concomitant]
     Route: 065
  5. LIPITOR [Concomitant]
     Active Substance: ATORVASTATIN CALCIUM
     Route: 065

REACTIONS (8)
  - Contusion [Recovered/Resolved]
  - Skin disorder [Unknown]
  - Product use in unapproved indication [Unknown]
  - Fall [Recovered/Resolved]
  - Mobility decreased [Unknown]
  - Hyperaesthesia [Recovered/Resolved]
  - Limb injury [Recovered/Resolved]
  - Wound haemorrhage [Recovered/Resolved]

NARRATIVE: CASE EVENT DATE: 201802
